FAERS Safety Report 13486072 (Version 2)
Quarter: 2017Q2

REPORT INFORMATION
  Report Type: Report from Study
  Country: None (occurrence: US)
  Receive Date: 20170426
  Receipt Date: 20170505
  Transmission Date: 20170830
  Serious: Yes (Hospitalization)
  Sender: FDA-Public Use
  Company Number: US-ABBVIE-17K-163-1951756-00

PATIENT
  Age: 78 Year
  Sex: Female
  Weight: 107.6 kg

DRUGS (1)
  1. HUMIRA [Suspect]
     Active Substance: ADALIMUMAB
     Indication: PSORIASIS
     Route: 058
     Dates: start: 2014, end: 201612

REACTIONS (8)
  - Diabetic complication [Unknown]
  - Dyspnoea [Recovering/Resolving]
  - Oedema [Recovering/Resolving]
  - Asthenia [Recovering/Resolving]
  - Cardiac failure congestive [Recovered/Resolved]
  - Chronic kidney disease [Unknown]
  - Blood glucose increased [Unknown]
  - Hepatic cirrhosis [Unknown]

NARRATIVE: CASE EVENT DATE: 20170403
